FAERS Safety Report 16022463 (Version 1)
Quarter: 2019Q1

REPORT INFORMATION
  Report Type: Spontaneous
  Country: US (occurrence: US)
  Receive Date: 20190204
  Receipt Date: 20190204
  Transmission Date: 20190418
  Serious: No
  Sender: FDA-Public Use
  Company Number: None

PATIENT
  Age: 55 Year
  Sex: Female

DRUGS (1)
  1. COSENTYX [Suspect]
     Active Substance: SECUKINUMAB
     Dates: start: 201803

REACTIONS (4)
  - Bacterial infection [None]
  - Therapy cessation [None]
  - Malaise [None]
  - Influenza [None]

NARRATIVE: CASE EVENT DATE: 20190101
